FAERS Safety Report 7519820-X (Version None)
Quarter: 2011Q2

REPORT INFORMATION
  Report Type: 
  Country: None (occurrence: None)
  Receive Date: 20110602
  Receipt Date: 20110519
  Transmission Date: 20111010
  Serious: Yes (Hospitalization)
  Sender: FDA-Public Use
  Company Number: US-JNJFOC-20101108445

PATIENT
  Sex: Male
  Weight: 67.5 kg

DRUGS (10)
  1. BUDESONIDE [Concomitant]
  2. MONTELUKAST SODIUM [Concomitant]
  3. CEFTRIAXONE [Concomitant]
  4. HUMIRA [Concomitant]
     Indication: INFLAMMATORY BOWEL DISEASE
     Dates: start: 20080909
  5. MESALAMINE [Concomitant]
  6. REMICADE [Suspect]
     Indication: INFLAMMATORY BOWEL DISEASE
     Route: 042
     Dates: start: 20020111, end: 20030417
  7. ASMANEX TWISTHALER [Concomitant]
  8. PROBIOTICS [Concomitant]
  9. METHOTREXATE [Concomitant]
  10. FOLIC ACID [Concomitant]

REACTIONS (1)
  - PNEUMONIA VIRAL [None]
